FAERS Safety Report 14678210 (Version 1)
Quarter: 2018Q1

REPORT INFORMATION
  Report Type: Spontaneous
  Country: US (occurrence: US)
  Receive Date: 20180326
  Receipt Date: 20180326
  Transmission Date: 20180509
  Serious: Yes (Other)
  Sender: FDA-Public Use
  Company Number: US-ZYDUS-019438

PATIENT
  Age: 36 Year
  Sex: Female

DRUGS (1)
  1. DOXYCYCLINE. [Suspect]
     Active Substance: DOXYCYCLINE
     Indication: GENITOURINARY TRACT INFECTION
     Route: 065

REACTIONS (6)
  - Jaundice [Unknown]
  - Hepatic necrosis [Unknown]
  - Acute hepatic failure [Unknown]
  - Fatigue [Unknown]
  - Malaise [Unknown]
  - Fibrosis [Unknown]
